FAERS Safety Report 5364040-0 (Version None)
Quarter: 2007Q2

REPORT INFORMATION
  Report Type: 
  Country: None (occurrence: None)
  Receive Date: 20070530
  Receipt Date: 20070109
  Transmission Date: 20071010
  Serious: No
  Sender: FDA-Public Use
  Company Number: 2007PV028075

PATIENT
  Sex: Female

DRUGS (7)
  1. BYETTA [Suspect]
     Indication: WEIGHT CONTROL
     Dosage: SEE IMAGE
     Route: 058
     Dates: start: 20061206, end: 20061210
  2. BYETTA [Suspect]
     Indication: WEIGHT CONTROL
     Dosage: SEE IMAGE
     Route: 058
     Dates: start: 20061211
  3. METFORMIN HCL [Concomitant]
  4. GLIMEPIRDE [Concomitant]
  5. AMARYL [Concomitant]
  6. INSULIN [Concomitant]
  7. BLOOD PRESSURE MEDICATION [Concomitant]

REACTIONS (7)
  - ABDOMINAL PAIN UPPER [None]
  - BLOOD GLUCOSE DECREASED [None]
  - BRONCHITIS [None]
  - ERUCTATION [None]
  - LACRIMATION INCREASED [None]
  - NAUSEA [None]
  - VOMITING [None]
